FAERS Safety Report 5671495-0 (Version None)
Quarter: 2008Q1

REPORT INFORMATION
  Report Type: 
  Country: None (occurrence: None)
  Receive Date: 20080313
  Receipt Date: 20071127
  Transmission Date: 20080703
  Serious: Yes (Hospitalization)
  Sender: FDA-Public Use
  Company Number: 2007S1012511

PATIENT
  Age: 2 Month
  Sex: Female

DRUGS (4)
  1. RANITIDINE [Suspect]
     Indication: DRUG USE FOR UNKNOWN INDICATION
     Dates: end: 20060101
  2. DIMETICONE (DIMETICONE) [Suspect]
     Indication: DRUG USE FOR UNKNOWN INDICATION
  3. GAVISCON [Suspect]
     Indication: DRUG USE FOR UNKNOWN INDICATION
     Dates: end: 20060101
  4. TILACTASE (TILACTASE) [Suspect]
     Indication: DRUG USE FOR UNKNOWN INDICATION

REACTIONS (1)
  - CONSTIPATION [None]
